FAERS Safety Report 5828429-5 (Version None)
Quarter: 2008Q3

REPORT INFORMATION
  Report Type: 
  Country: None (occurrence: None)
  Receive Date: 20080731
  Receipt Date: 20080720
  Transmission Date: 20090109
  Serious: Yes (Death, Hospitalization)
  Sender: FDA-Public Use
  Company Number: US-ROCHE-576671

PATIENT
  Age: 51 Year
  Sex: Male

DRUGS (3)
  1. PEGASYS [Suspect]
     Indication: DRUG USE FOR UNKNOWN INDICATION
     Route: 065
  2. PEGASYS [Suspect]
     Route: 065
  3. RIBAVIRIN [Suspect]
     Indication: DRUG USE FOR UNKNOWN INDICATION
     Route: 065

REACTIONS (3)
  - BONE NEOPLASM MALIGNANT [None]
  - DEATH [None]
  - NO THERAPEUTIC RESPONSE [None]
